FAERS Safety Report 10262077 (Version 1)
Quarter: 2013Q4

REPORT INFORMATION
  Report Type: Spontaneous
  Country: US (occurrence: None)
  Receive Date: 20130103
  Receipt Date: 20130103
  Transmission Date: 20140711
  Serious: Yes (Hospitalization)
  Sender: FDA-Public Use
  Company Number: None

PATIENT
  Age: 78 Year
  Sex: Male

DRUGS (3)
  1. KENALOG [Suspect]
  2. MARCAINE [Suspect]
  3. DEXAMETHASONE [Suspect]

REACTIONS (1)
  - Pneumonia [None]
